FAERS Safety Report 7632336-5 (Version None)
Quarter: 2011Q3

REPORT INFORMATION
  Report Type: 
  Country: None (occurrence: None)
  Receive Date: 20110725
  Receipt Date: 20100804
  Transmission Date: 20111222
  Serious: No
  Sender: FDA-Public Use
  Company Number: US-BRISTOL-MYERS SQUIBB COMPANY-15224751

PATIENT
  Age: 80 Year
  Sex: Female
  Weight: 66 kg

DRUGS (6)
  1. CHOLESTEROL MEDICATION [Concomitant]
  2. CALCIUM + VITAMIN D [Concomitant]
  3. BLOOD PRESSURE MEDICATION [Concomitant]
  4. VITAMIN E [Concomitant]
  5. WARFARIN SODIUM [Suspect]
     Dosage: FOR 6 MONTHS REDUCED TO 5.5MG
     Dates: start: 20100101
  6. HYDROCODONE BITARTRATE [Concomitant]

REACTIONS (1)
  - CONTUSION [None]
